FAERS Safety Report 4801969-3 (Version None)
Quarter: 2005Q4

REPORT INFORMATION
  Report Type: 
  Country: None (occurrence: None)
  Receive Date: 20051018
  Receipt Date: 20041028
  Transmission Date: 20060501
  Serious: Yes (Hospitalization)
  Sender: FDA-Public Use
  Company Number: US-MERCK-0410USA04344

PATIENT
  Age: 41 Year
  Sex: Female

DRUGS (1)
  1. VIOXX [Suspect]
     Route: 048

REACTIONS (9)
  - ASTHMA [None]
  - CHEST DISCOMFORT [None]
  - CHEST PAIN [None]
  - COSTOCHONDRITIS [None]
  - DIZZINESS [None]
  - MIGRAINE [None]
  - NASOPHARYNGITIS [None]
  - NON-CARDIAC CHEST PAIN [None]
  - OEDEMA PERIPHERAL [None]
